FAERS Safety Report 22100562 (Version 1)
Quarter: 2023Q1

REPORT INFORMATION
  Report Type: Spontaneous
  Country: GB (occurrence: None)
  Receive Date: 20230316
  Receipt Date: 20230316
  Transmission Date: 20230418
  Serious: Yes (Other)
  Sender: FDA-Public Use
  Company Number: 2023A055707

PATIENT
  Age: 79 Year
  Sex: Female

DRUGS (6)
  1. BUDESONIDE\FORMOTEROL\GLYCOPYRRONIUM [Suspect]
     Active Substance: BUDESONIDE\FORMOTEROL\GLYCOPYRRONIUM
     Indication: Chronic obstructive pulmonary disease
     Dosage: TWO PUFFS TWICE DAILY
     Route: 055
     Dates: start: 20230223
  2. ATORVASTATIN [Concomitant]
     Active Substance: ATORVASTATIN
  3. BETAHISTINE [Concomitant]
     Active Substance: BETAHISTINE
  4. CARBOCYSTEINE [Concomitant]
     Active Substance: CARBOCYSTEINE
     Indication: Chronic obstructive pulmonary disease
  5. INSULIN HUMAN [Concomitant]
     Active Substance: INSULIN HUMAN
  6. NICORANDIL [Concomitant]
     Active Substance: NICORANDIL

REACTIONS (2)
  - Hypoglycaemia [Not Recovered/Not Resolved]
  - Dizziness [Unknown]

NARRATIVE: CASE EVENT DATE: 20230223
